FAERS Safety Report 5535585-5 (Version None)
Quarter: 2007Q4

REPORT INFORMATION
  Report Type: 
  Country: None (occurrence: None)
  Receive Date: 20071204
  Receipt Date: 20071123
  Transmission Date: 20080405
  Serious: Yes (Hospitalization, Other)
  Sender: FDA-Public Use
  Company Number: US-JNJ-FOC-20070804925

PATIENT
  Age: 75 Year
  Sex: Male
  Weight: 73.0291 kg

DRUGS (5)
  1. DACOGEN [Suspect]
     Indication: MYELODYSPLASTIC SYNDROME
     Dosage: 20 MG/M2, INTRAVENOUS, 15 MG/M2, INTRAVENOUS
     Route: 042
     Dates: start: 20070629, end: 20070703
  2. DACOGEN [Suspect]
     Indication: MYELODYSPLASTIC SYNDROME
     Dosage: 20 MG/M2, INTRAVENOUS, 15 MG/M2, INTRAVENOUS
     Route: 042
     Dates: start: 20070725, end: 20070730
  3. DACOGEN [Suspect]
     Indication: MYELODYSPLASTIC SYNDROME
     Dosage: 20 MG/M2, INTRAVENOUS, 15 MG/M2, INTRAVENOUS
     Route: 042
     Dates: start: 20070911
  4. EPOGEN (EPOETIN ALFA) UNSPECIFIED [Concomitant]
  5. NEUPOGEN [Concomitant]

REACTIONS (10)
  - BLOOD PRODUCT TRANSFUSION DEPENDENT [None]
  - BODY TINEA [None]
  - CONTUSION [None]
  - FEBRILE NEUTROPENIA [None]
  - INTRAVASCULAR HAEMOLYSIS [None]
  - PANCYTOPENIA [None]
  - PLEURAL EFFUSION [None]
  - PNEUMONIA PRIMARY ATYPICAL [None]
  - TESTICULAR SWELLING [None]
  - TINEA CRURIS [None]
